FAERS Safety Report 5128214-6 (Version None)
Quarter: 2006Q4

REPORT INFORMATION
  Report Type: 
  Country: None (occurrence: None)
  Receive Date: 20061011
  Receipt Date: 20061002
  Transmission Date: 20070319
  Serious: Yes (Hospitalization, Other)
  Sender: FDA-Public Use
  Company Number: GXKR2006GB06131

PATIENT
  Age: 56 Year
  Sex: Female
  Weight: 105 kg

DRUGS (3)
  1. LISINOPRIL [Suspect]
     Indication: HYPERTENSION
     Dosage: 10 MG, UNK, ORAL
     Route: 048
     Dates: end: 20060502
  2. AMLODIPINE [Concomitant]
  3. BENDROFLUAZIDE (BENDROFLUMETHIAZIDE) [Concomitant]

REACTIONS (3)
  - ERYTHEMA NODOSUM [None]
  - LYMPHADENOPATHY [None]
  - SARCOIDOSIS [None]
